FAERS Safety Report 13585870 (Version 2)
Quarter: 2017Q2

REPORT INFORMATION
  Report Type: Report from Study
  Country: CA (occurrence: CA)
  Receive Date: 20170526
  Receipt Date: 20170602
  Transmission Date: 20170830
  Serious: Yes (Hospitalization, Other)
  Sender: FDA-Public Use
  Company Number: CA-JNJFOC-20170517085

PATIENT

DRUGS (1)
  1. USTEKINUMAB [Suspect]
     Active Substance: USTEKINUMAB
     Indication: CROHN^S DISEASE
     Route: 058

REACTIONS (14)
  - Soft tissue infection [Unknown]
  - Clostridium difficile infection [Unknown]
  - Injection site reaction [Unknown]
  - Rash [Unknown]
  - Alopecia [Unknown]
  - Pancreatitis [Unknown]
  - Headache [Unknown]
  - Arthralgia [Unknown]
  - Tooth abscess [Unknown]
  - Respiratory tract infection [Unknown]
  - Infection [Unknown]
  - Therapeutic product ineffective [Unknown]
  - Fatigue [Unknown]
  - Upper respiratory tract infection [Unknown]
